FAERS Safety Report 9041482 (Version 1)
Quarter: 2013Q1

REPORT INFORMATION
  Report Type: Report from Study
  Country: US (occurrence: US)
  Receive Date: 20130129
  Receipt Date: 20130129
  Transmission Date: 20140127
  Serious: No
  Sender: FDA-Public Use
  Company Number: US-ABBOTT-12P-163-0888527-00

PATIENT
  Age: 38 Year
  Sex: Female

DRUGS (10)
  1. HUMIRA 40 MG/ 0.8 ML PRE-FILLED SYRINGE [Suspect]
     Indication: SARCOIDOSIS
     Dates: start: 20111216
  2. METHOTREXATE [Concomitant]
     Indication: PRODUCT USED FOR UNKNOWN INDICATION
     Dosage: 2.5 MG - 4 TABLETS WEEKLY
     Route: 048
  3. AMBIEN [Concomitant]
     Indication: PRODUCT USED FOR UNKNOWN INDICATION
     Dosage: AT BEDTIME
     Route: 048
  4. PREDNISONE [Concomitant]
     Indication: PRODUCT USED FOR UNKNOWN INDICATION
     Route: 048
  5. FOLIC ACID [Concomitant]
     Indication: PRODUCT USED FOR UNKNOWN INDICATION
  6. MULTIVITAMINS [Concomitant]
     Indication: PRODUCT USED FOR UNKNOWN INDICATION
  7. CALCIUM [Concomitant]
     Indication: MINERAL SUPPLEMENTATION
  8. VITAMIN D [Concomitant]
     Indication: VITAMIN SUPPLEMENTATION
  9. VITAMIN C [Concomitant]
     Indication: VITAMIN SUPPLEMENTATION
  10. VICODIN [Concomitant]
     Indication: INFLAMMATION

REACTIONS (5)
  - Fatigue [Recovering/Resolving]
  - Injection site pain [Recovered/Resolved]
  - Chest discomfort [Unknown]
  - Chest pain [Recovered/Resolved]
  - Chest pain [Unknown]
